FAERS Safety Report 7768519-3 (Version None)
Quarter: 2011Q3

REPORT INFORMATION
  Report Type: 
  Country: None (occurrence: None)
  Receive Date: 20110922
  Receipt Date: 20110607
  Transmission Date: 20111222
  Serious: No
  Sender: FDA-Public Use
  Company Number: US-ASTRAZENECA-2011SE35192

PATIENT
  Age: 53 Year
  Sex: Female
  Weight: 122.5 kg

DRUGS (6)
  1. SEROQUEL [Suspect]
     Route: 048
  2. LEVOXYL [Concomitant]
  3. PAXIL [Concomitant]
  4. SEROQUEL [Suspect]
     Indication: DEPRESSION
     Route: 048
     Dates: start: 20010101
  5. SEROQUEL [Suspect]
     Indication: ANXIETY
     Route: 048
     Dates: start: 20010101
  6. SEROQUEL [Suspect]
     Route: 048

REACTIONS (5)
  - THIRST [None]
  - OFF LABEL USE [None]
  - WEIGHT INCREASED [None]
  - CHEST PAIN [None]
  - TEMPERATURE INTOLERANCE [None]
